FAERS Safety Report 10475467 (Version 1)
Quarter: 2014Q3

REPORT INFORMATION
  Report Type: Spontaneous
  Country: US (occurrence: None)
  Receive Date: 20140924
  Receipt Date: 20140924
  Transmission Date: 20150326
  Serious: Yes (Hospitalization)
  Sender: FDA-Public Use
  Company Number: None

PATIENT
  Age: 64 Year
  Sex: Male
  Weight: 93 kg

DRUGS (2)
  1. WARFARIN [Suspect]
     Active Substance: WARFARIN
     Dosage: MG, EVERYDAY, PO
     Route: 048
     Dates: start: 20140625, end: 20140908
  2. ASPIRIN. [Suspect]
     Active Substance: ASPIRIN
     Route: 048
     Dates: start: 20080821, end: 20140908

REACTIONS (2)
  - Contusion [None]
  - Haematuria [None]

NARRATIVE: CASE EVENT DATE: 20140908
